FAERS Safety Report 7658774-2 (Version None)
Quarter: 2011Q3

REPORT INFORMATION
  Report Type: 
  Country: None (occurrence: None)
  Receive Date: 20110805
  Receipt Date: 20110805
  Transmission Date: 20111222
  Serious: Yes (Other)
  Sender: FDA-Public Use
  Company Number: None

PATIENT
  Age: 58 Year
  Sex: Female
  Weight: 70.306 kg

DRUGS (1)
  1. SUBUTEX [Suspect]
     Indication: PAIN MANAGEMENT
     Dosage: 2 TABLETS
     Route: 048
     Dates: start: 20080512, end: 20110804

REACTIONS (6)
  - DRY MOUTH [None]
  - DENTAL CARIES [None]
  - DYSURIA [None]
  - DRUG INEFFECTIVE [None]
  - TOOTH EXTRACTION [None]
  - DRY SKIN [None]
